FAERS Safety Report 13385059 (Version 1)
Quarter: 2017Q1

REPORT INFORMATION
  Report Type: Spontaneous
  Country: US (occurrence: US)
  Receive Date: 20170329
  Receipt Date: 20170329
  Transmission Date: 20170429
  Serious: Yes (Hospitalization)
  Sender: FDA-Public Use
  Company Number: US-VIFOR (INTERNATIONAL) INC.-VIT-2017-03292

PATIENT
  Age: 78 Year
  Sex: Male

DRUGS (17)
  1. ATORVASTATIN [Concomitant]
     Active Substance: ATORVASTATIN
  2. SODIUM BICARBONATE. [Concomitant]
     Active Substance: SODIUM BICARBONATE
     Route: 048
  3. BETHANECHOL [Concomitant]
     Active Substance: BETHANECHOL
  4. CARVEDILOL. [Concomitant]
     Active Substance: CARVEDILOL
  5. GABAPENTIN. [Concomitant]
     Active Substance: GABAPENTIN
  6. MAGNESIUM [Concomitant]
     Active Substance: MAGNESIUM
  7. HYDRALAZINE [Concomitant]
     Active Substance: HYDRALAZINE HYDROCHLORIDE
  8. FOLIC ACID. [Concomitant]
     Active Substance: FOLIC ACID
  9. ALLOPURINOL. [Concomitant]
     Active Substance: ALLOPURINOL
  10. LORAZEPAM. [Concomitant]
     Active Substance: LORAZEPAM
  11. VELTASSA [Suspect]
     Active Substance: PATIROMER
     Indication: HYPERKALAEMIA
     Dates: start: 20160707
  12. DONEPEZIL. [Concomitant]
     Active Substance: DONEPEZIL
  13. CLONIDINE. [Concomitant]
     Active Substance: CLONIDINE
  14. LEVETIRACETAM. [Concomitant]
     Active Substance: LEVETIRACETAM
  15. ENALAPRIL [Concomitant]
     Active Substance: ENALAPRIL
  16. NIFEDIPINE. [Concomitant]
     Active Substance: NIFEDIPINE
  17. ESCITALOPRAM [Concomitant]
     Active Substance: ESCITALOPRAM OXALATE

REACTIONS (1)
  - Pneumonia [Not Recovered/Not Resolved]

NARRATIVE: CASE EVENT DATE: 20170323
